FAERS Safety Report 5792710-9 (Version None)
Quarter: 2008Q2

REPORT INFORMATION
  Report Type: 
  Country: None (occurrence: None)
  Receive Date: 20080624
  Receipt Date: 20080617
  Transmission Date: 20081010
  Serious: Yes (Death)
  Sender: FDA-Public Use
  Company Number: 163-21880-08051623

PATIENT
  Age: 79 Year
  Sex: Female

DRUGS (1)
  1. REVLIMID [Suspect]
     Indication: MYELODYSPLASTIC SYNDROME
     Dosage: 5 MG, DAILY FOR 21 DAYS, ORAL
     Route: 048
     Dates: start: 20071116, end: 20080101

REACTIONS (4)
  - DISEASE PROGRESSION [None]
  - HAEMORRHAGE [None]
  - MYELODYSPLASTIC SYNDROME [None]
  - NERVOUS SYSTEM DISORDER [None]
